FAERS Safety Report 4728887-3 (Version None)
Quarter: 2005Q3

REPORT INFORMATION
  Report Type: 
  Country: None (occurrence: None)
  Receive Date: 20050729
  Receipt Date: 20041014
  Transmission Date: 20060218
  Serious: No
  Sender: FDA-Public Use
  Company Number: US-GLAXOSMITHKLINE-A0529960A

PATIENT
  Sex: Female

DRUGS (9)
  1. IMITREX [Suspect]
     Indication: MIGRAINE
     Dosage: 50MG AS REQUIRED
     Route: 048
  2. NADOLOL [Concomitant]
  3. NORTRIPTYLINE HCL [Concomitant]
  4. BEXTRA [Concomitant]
  5. UNKNOWN MEDICATION [Concomitant]
  6. VITAMIN D [Concomitant]
  7. CALCITRIOL [Concomitant]
  8. HUMIRA [Concomitant]
  9. DARVOCET [Concomitant]

REACTIONS (2)
  - HYPOAESTHESIA [None]
  - PAIN IN EXTREMITY [None]
